FAERS Safety Report 6078502-4 (Version None)
Quarter: 2009Q1

REPORT INFORMATION
  Report Type: 
  Country: None (occurrence: None)
  Receive Date: 20090211
  Receipt Date: 20090211
  Transmission Date: 20090719
  Serious: Yes (Other)
  Sender: FDA-Public Use
  Company Number: None

PATIENT
  Sex: Male
  Weight: 90.7194 kg

DRUGS (2)
  1. CIPROFLOXACIN [Suspect]
     Indication: PROSTATITIS
     Dosage: 1 TAB 2X ADAY PO
     Route: 048
  2. LEVAQUIN [Suspect]
     Dosage: 1TAB 1 ADAY PO
     Route: 048

REACTIONS (3)
  - DRUG HYPERSENSITIVITY [None]
  - GENITAL BURNING SENSATION [None]
  - PROCTALGIA [None]
